FAERS Safety Report 4663520-0 (Version None)
Quarter: 2005Q2

REPORT INFORMATION
  Report Type: 
  Country: None (occurrence: None)
  Receive Date: 20050517
  Receipt Date: 20041203
  Transmission Date: 20051028
  Serious: Yes (Other)
  Sender: FDA-Public Use
  Company Number: GB-GLAXOSMITHKLINE-B0359498A

PATIENT
  Sex: Female

DRUGS (5)
  1. PAROXETINE HCL [Suspect]
     Indication: DEPRESSION
     Route: 065
  2. LORAZEPAM [Concomitant]
     Route: 065
  3. IBUPROFEN [Concomitant]
     Route: 065
  4. PARACETAMOL [Concomitant]
     Route: 065
  5. KAPAKE [Concomitant]
     Route: 065

REACTIONS (7)
  - AGGRESSION [None]
  - AGORAPHOBIA [None]
  - DISSOCIATION [None]
  - DRUG INEFFECTIVE [None]
  - ILL-DEFINED DISORDER [None]
  - MULTIPLE DRUG OVERDOSE [None]
  - SUICIDE ATTEMPT [None]
